FAERS Safety Report 4425954-9 (Version None)
Quarter: 2004Q3

REPORT INFORMATION
  Report Type: 
  Country: None (occurrence: None)
  Receive Date: 20040719
  Receipt Date: 20030822
  Transmission Date: 20050211
  Serious: Yes (Hospitalization)
  Sender: FDA-Public Use
  Company Number: 178020

PATIENT
  Age: 40 Year
  Sex: Female
  Weight: 84.369 kg

DRUGS (7)
  1. AVONEX [Suspect]
     Indication: MULTIPLE SCLEROSIS
     Dosage: 30 MCG QW IM
     Route: 030
     Dates: start: 20010101, end: 20030601
  2. LAMICTAL [Concomitant]
  3. NEURONTIN [Concomitant]
  4. PROZAC [Concomitant]
  5. AZATHIOPRINE [Concomitant]
  6. BACLOFEN [Concomitant]
  7. DIAZEPAM [Concomitant]

REACTIONS (5)
  - BLADDER SPASM [None]
  - CONVULSION [None]
  - MULTIPLE SCLEROSIS RELAPSE [None]
  - MUSCLE SPASTICITY [None]
  - URINARY TRACT INFECTION [None]
